FAERS Safety Report 23192586 (Version 1)
Quarter: 2023Q4

REPORT INFORMATION
  Report Type: Spontaneous
  Country: CN (occurrence: CN)
  Receive Date: 20231116
  Receipt Date: 20231116
  Transmission Date: 20240110
  Serious: Yes (Life-Threatening, Other)
  Sender: FDA-Public Use
  Company Number: CN-ELI_LILLY_AND_COMPANY-CN202311009065

PATIENT
  Age: 66 Year
  Sex: Male

DRUGS (3)
  1. RAMUCIRUMAB [Suspect]
     Active Substance: RAMUCIRUMAB
     Indication: Gastric cancer
     Dosage: 430 MG, SINGLE
     Route: 041
     Dates: start: 20231027, end: 20231027
  2. PACLITAXEL [Suspect]
     Active Substance: PACLITAXEL
     Indication: Gastric cancer
     Dosage: 90 MG, SINGLE
     Route: 041
     Dates: start: 20231016, end: 20231016
  3. PACLITAXEL [Suspect]
     Active Substance: PACLITAXEL
     Dosage: 90 MG, SINGLE
     Route: 041
     Dates: start: 20231027, end: 20231027

REACTIONS (2)
  - Myelosuppression [Recovering/Resolving]
  - Granulocytopenia [Recovering/Resolving]

NARRATIVE: CASE EVENT DATE: 20231031
